FAERS Safety Report 9248675 (Version 1)
Quarter: 2013Q1

REPORT INFORMATION
  Report Type: Spontaneous
  Country: US (occurrence: None)
  Receive Date: 20130305
  Receipt Date: 20130305
  Transmission Date: 20140127
  Serious: Yes (Other)
  Sender: FDA-Public Use
  Company Number: 163-21880-12091614 (0)

PATIENT
  Age: 55 Year
  Sex: Female
  Weight: 90.72 kg

DRUGS (17)
  1. REVLIMID (LENALIDOMIDE) (25 MILLIGRAM, CAPSULES) [Suspect]
     Indication: PLASMA CELL MYELOMA
     Dosage: 25 MG, 14 IN 14 D, PO
     Route: 048
     Dates: start: 20120806
  2. CHROMIUM (CHROMIUM) [Concomitant]
  3. CINNAMON (CINNAMOMUM VERUM) [Concomitant]
  4. DECADRON (DEXAMETASONE) [Concomitant]
  5. ECOTRIN (ACETYLSALICYLIC ACID) [Concomitant]
  6. ENALAPRIL/HCTZ (VESERETIC) [Concomitant]
  7. FISH OIL (FISH OIL) [Concomitant]
  8. GARLIC (GARLIC) [Concomitant]
  9. GREEN TEA (ALL OTHER NON-THERAPEUTIC PRODUCTS( [Concomitant]
  10. HOODIA (ALL OTHER NON-THERAPEUTIC PRODUCTS) [Concomitant]
  11. HYDROCODONE (HYDROCODOE) [Concomitant]
  12. LIPITOR (ATORVASTATIN) [Concomitant]
  13. LOVENOX (HEPARIN-FRACTION, SODIUM SALT) [Concomitant]
  14. VITAMINS [Concomitant]
  15. TURMERIC (TUMRMERIC) [Concomitant]
  16. VITAMIN B-12 (CYANOCOBALAMIN) [Concomitant]
  17. ZOMETA (ZOLEDRONIC ACID) [Concomitant]

REACTIONS (2)
  - Herpes zoster [None]
  - Hypokalaemia [None]
